FAERS Safety Report 5490894-3 (Version None)
Quarter: 2007Q4

REPORT INFORMATION
  Report Type: 
  Country: None (occurrence: None)
  Receive Date: 20071019
  Receipt Date: 20071015
  Transmission Date: 20080405
  Serious: Yes (Hospitalization)
  Sender: FDA-Public Use
  Company Number: US-BRISTOL-MYERS SQUIBB COMPANY-13943261

PATIENT
  Age: 58 Year
  Sex: Male
  Weight: 28 kg

DRUGS (1)
  1. ERBITUX [Suspect]
     Indication: OESOPHAGEAL CARCINOMA
     Dosage: FIRST ADMINISTRATION : 15-MAR-2007.THERAPY DATES:15-MAR-2007-04-MAY-2007
     Route: 041
     Dates: start: 20070504, end: 20070504

REACTIONS (4)
  - DEHYDRATION [None]
  - FATIGUE [None]
  - HYPONATRAEMIA [None]
  - HYPOTENSION [None]
